FAERS Safety Report 24561919 (Version 1)
Quarter: 2024Q4

REPORT INFORMATION
  Report Type: Spontaneous
  Country: US (occurrence: US)
  Receive Date: 20241029
  Receipt Date: 20241029
  Transmission Date: 20250115
  Serious: Yes (Hospitalization, Other)
  Sender: SANOFI AVENTIS
  Company Number: US-SA-2024SA305568

PATIENT
  Age: 74 Year
  Sex: Female

DRUGS (26)
  1. TOUJEO [Suspect]
     Active Substance: INSULIN GLARGINE
     Indication: Type 2 diabetes mellitus
     Dosage: 300 IU
     Dates: end: 2024
  2. TOUJEO [Suspect]
     Active Substance: INSULIN GLARGINE
     Dosage: UNK DOSE REDUCED
     Dates: start: 2024, end: 2024
  3. TOUJEO [Suspect]
     Active Substance: INSULIN GLARGINE
     Dosage: 230 U
     Dates: start: 2024, end: 2024
  4. MIFEPRISTONE [Suspect]
     Active Substance: MIFEPRISTONE
     Indication: Cushing^s syndrome
     Dosage: 300 MG QD
     Route: 048
     Dates: start: 20240802
  5. OZEMPIC [Suspect]
     Active Substance: SEMAGLUTIDE
     Dosage: UNK
  6. NOVOLIN 70/30 [Suspect]
     Active Substance: INSULIN HUMAN
     Dosage: UNK
  7. JARDIANCE [Suspect]
     Active Substance: EMPAGLIFLOZIN
     Dosage: UNK
  8. AMLODIPINE [Concomitant]
     Active Substance: AMLODIPINE BESYLATE
     Dosage: UNK
  9. ASPIRIN [Concomitant]
     Active Substance: ASPIRIN
     Dosage: UNK
  10. CRANBERRY [ASCORBIC ACID;TOCOPHEROL;VACCINIUM MACROCARPON] [Concomitant]
     Dosage: UNK
  11. DIGESTIVE ADVANTAGE [BACILLUS COAGULANS] [Concomitant]
     Dosage: UNK
  12. EZETIMIBE [Concomitant]
     Active Substance: EZETIMIBE
     Dosage: UNK
  13. FENOFIBRATE [Concomitant]
     Active Substance: FENOFIBRATE
     Dosage: UNK
  14. FUROSEMIDE [Concomitant]
     Active Substance: FUROSEMIDE
     Dosage: UNK
  15. LATANOPROST [Concomitant]
     Active Substance: LATANOPROST
  16. MAGNESIUM [Concomitant]
     Active Substance: MAGNESIUM
  17. PANTOPRAZOLE [Concomitant]
     Active Substance: PANTOPRAZOLE
  18. TIMOLOL [Concomitant]
     Active Substance: TIMOLOL\TIMOLOL MALEATE
  19. TIZANIDINE [Concomitant]
     Active Substance: TIZANIDINE
  20. RETINOL [Concomitant]
     Active Substance: RETINOL
  21. VITAMIN D NOS [Concomitant]
     Active Substance: CHOLECALCIFEROL\ERGOCALCIFEROL
  22. FISH OIL [Concomitant]
     Active Substance: FISH OIL
  23. VITAMIN B12 [Concomitant]
     Active Substance: CYANOCOBALAMIN
  24. AZO [Concomitant]
     Active Substance: PHENAZOPYRIDINE HYDROCHLORIDE
  25. PHENAZOPYRIDINE [Concomitant]
     Active Substance: PHENAZOPYRIDINE
  26. NOVOLOG [Concomitant]
     Active Substance: INSULIN ASPART

REACTIONS (14)
  - Hot flush [Recovering/Resolving]
  - Flatulence [Not Recovered/Not Resolved]
  - Eructation [Recovered/Resolved]
  - Feeling cold [Recovering/Resolving]
  - Nausea [Recovering/Resolving]
  - Constipation [Not Recovered/Not Resolved]
  - Pain [Not Recovered/Not Resolved]
  - Feeding disorder [Not Recovered/Not Resolved]
  - Hypertension [Not Recovered/Not Resolved]
  - Dizziness [Recovering/Resolving]
  - Tremor [Unknown]
  - Hypersomnia [Unknown]
  - Hypoglycaemia [Unknown]
  - Blood glucose increased [Not Recovered/Not Resolved]

NARRATIVE: CASE EVENT DATE: 20240101
